FAERS Safety Report 7814529-7 (Version None)
Quarter: 2011Q4

REPORT INFORMATION
  Report Type: 
  Country: None (occurrence: None)
  Receive Date: 20111014
  Receipt Date: 20111014
  Transmission Date: 20120403
  Serious: Yes (Other)
  Sender: FDA-Public Use
  Company Number: PHHO2009US03195

PATIENT
  Sex: Female
  Weight: 96.8 kg

DRUGS (12)
  1. SPIRONOLACTONE [Concomitant]
  2. PREMPRO [Concomitant]
  3. WELLBUTRIN [Concomitant]
  4. MECLIZINE [Concomitant]
  5. TRAMADOL HCL [Concomitant]
  6. PROVIGIL [Concomitant]
  7. GILENYA [Suspect]
     Indication: MULTIPLE SCLEROSIS
     Dosage: 1.25 MG, UNK
     Route: 048
     Dates: start: 20071008, end: 20090407
  8. CALCIUM CARBONATE [Concomitant]
  9. DIAZEPAM [Concomitant]
  10. CARBAMAZEPINE [Concomitant]
  11. VITAMIN E [Concomitant]
  12. LOVAZA [Concomitant]

REACTIONS (9)
  - MELANOCYTIC NAEVUS [None]
  - LENTIGO [None]
  - ERYTHEMA [None]
  - FIBROUS HISTIOCYTOMA [None]
  - MACULE [None]
  - SKIN PLAQUE [None]
  - BASAL CELL CARCINOMA [None]
  - HAEMANGIOMA [None]
  - PAPULE [None]
